FAERS Safety Report 16852950 (Version 2)
Quarter: 2019Q4

REPORT INFORMATION
  Report Type: Spontaneous
  Country: US (occurrence: US)
  Receive Date: 20190925
  Receipt Date: 20191211
  Transmission Date: 20200122
  Serious: No
  Sender: FDA-Public Use
  Company Number: US-ARRAY-2019-06363

PATIENT

DRUGS (2)
  1. BRAFTOVI [Suspect]
     Active Substance: ENCORAFENIB
     Indication: PANCREATIC CARCINOMA
     Dosage: 450 MG, QD
     Route: 048
     Dates: start: 20190815
  2. MEKTOVI [Suspect]
     Active Substance: BINIMETINIB
     Indication: PANCREATIC CARCINOMA
     Dosage: 45 MG, BID
     Route: 048
     Dates: start: 20190815

REACTIONS (5)
  - Depressed mood [Recovered/Resolved]
  - Increased appetite [Unknown]
  - Nausea [Unknown]
  - Cheilitis [Unknown]
  - Product use in unapproved indication [Unknown]

NARRATIVE: CASE EVENT DATE: 201908
